FAERS Safety Report 5481668-8 (Version None)
Quarter: 2007Q3

REPORT INFORMATION
  Report Type: 
  Country: None (occurrence: None)
  Receive Date: 20070913
  Receipt Date: 20070705
  Transmission Date: 20080115
  Serious: Yes (Other)
  Sender: FDA-Public Use
  Company Number: PHEH2006US09468

PATIENT
  Age: 52 Year
  Sex: Female

DRUGS (1)
  1. DIOVAN [Suspect]
     Indication: HYPERTENSION
     Dates: start: 20060101, end: 20070101

REACTIONS (12)
  - ASTHENIA [None]
  - BLOOD PRESSURE FLUCTUATION [None]
  - BLOOD PRESSURE INADEQUATELY CONTROLLED [None]
  - CONSTIPATION [None]
  - DIZZINESS [None]
  - FEELING OF BODY TEMPERATURE CHANGE [None]
  - HYPERSENSITIVITY [None]
  - NASAL CONGESTION [None]
  - OESTROGEN DEFICIENCY [None]
  - PAIN [None]
  - RHINORRHOEA [None]
  - SYNCOPE [None]
